FAERS Safety Report 6146281-8 (Version None)
Quarter: 2009Q2

REPORT INFORMATION
  Report Type: 
  Country: None (occurrence: None)
  Receive Date: 20090406
  Receipt Date: 20090406
  Transmission Date: 20091009
  Serious: Yes (Hospitalization, Other)
  Sender: FDA-Public Use
  Company Number: None

PATIENT
  Age: 41 Year
  Sex: Female
  Weight: 61.2356 kg

DRUGS (5)
  1. HUMIRA [Suspect]
     Indication: RHEUMATOID ARTHRITIS
     Dosage: 40 MG IN 0.8 SYRINGE 1 INJECTION EVERY 2 WKS
     Dates: start: 20060101
  2. HUMIRA [Suspect]
     Indication: SYSTEMIC LUPUS ERYTHEMATOSUS
     Dosage: 40 MG IN 0.8 SYRINGE 1 INJECTION EVERY 2 WKS
     Dates: start: 20060101
  3. HUMIRA [Suspect]
     Indication: RHEUMATOID ARTHRITIS
     Dosage: 40 MG IN 0.8 SYRINGE 1 INJECTION EVERY 2 WKS
     Dates: start: 20070101
  4. HUMIRA [Suspect]
     Indication: SYSTEMIC LUPUS ERYTHEMATOSUS
     Dosage: 40 MG IN 0.8 SYRINGE 1 INJECTION EVERY 2 WKS
     Dates: start: 20070101
  5. ENBREL [Concomitant]

REACTIONS (6)
  - COUGH [None]
  - DYSPNOEA [None]
  - FATIGUE [None]
  - INCREASED UPPER AIRWAY SECRETION [None]
  - MASS [None]
  - PYREXIA [None]
